FAERS Safety Report 5679809-2 (Version None)
Quarter: 2008Q1

REPORT INFORMATION
  Report Type: 
  Country: None (occurrence: None)
  Receive Date: 20080321
  Receipt Date: 20080305
  Transmission Date: 20080703
  Serious: Yes (Death, Other)
  Sender: FDA-Public Use
  Company Number: 2005JP000048

PATIENT
  Age: 21 Month
  Sex: Female
  Weight: 9.9 kg

DRUGS (3)
  1. PROGRAF [Suspect]
     Indication: SMALL INTESTINE TRANSPLANT
     Dates: start: 20030919, end: 20031030
  2. STEROID [Concomitant]
  3. SIMULECT [Concomitant]

REACTIONS (6)
  - CHOLANGITIS [None]
  - EPSTEIN-BARR VIRUS TEST POSITIVE [None]
  - HEPATIC STEATOSIS [None]
  - PLEURAL EFFUSION [None]
  - POST TRANSPLANT LYMPHOPROLIFERATIVE DISORDER [None]
  - SEPTIC SHOCK [None]
